FAERS Safety Report 6610436-6 (Version None)
Quarter: 2010Q1

REPORT INFORMATION
  Report Type: 
  Country: None (occurrence: None)
  Receive Date: 20100302
  Receipt Date: 20100218
  Transmission Date: 20100710
  Serious: Yes (Life-Threatening, Hospitalization, Other)
  Sender: FDA-Public Use
  Company Number: US-JNJCH-2009031643

PATIENT
  Age: 36 Month
  Sex: Male
  Weight: 12.6 kg

DRUGS (1)
  1. ASPIRIN [Suspect]
     Indication: DRUG USE FOR UNKNOWN INDICATION
     Dosage: TEXT:3.2 TO 4.8 GRAMS (250-380 MG/KG)
     Route: 048

REACTIONS (5)
  - ACCIDENTAL DRUG INTAKE BY CHILD [None]
  - ACCIDENTAL OVERDOSE [None]
  - CARDIAC FAILURE CONGESTIVE [None]
  - COMA [None]
  - THERAPEUTIC AGENT TOXICITY [None]
